FAERS Safety Report 10102777 (Version 2)
Quarter: 2014Q2

REPORT INFORMATION
  Report Type: Other
  Country: US (occurrence: US)
  Receive Date: 20140424
  Receipt Date: 20140625
  Transmission Date: 20141212
  Serious: Yes (Other)
  Sender: FDA-Public Use
  Company Number: US-GSKPPD-2014GSK000124

PATIENT
  Sex: Female
  Weight: 95.34 kg

DRUGS (4)
  1. AVANDIA [Suspect]
     Indication: DIABETES MELLITUS
     Route: 048
     Dates: start: 20111107, end: 20111109
  2. ACCUPRIL [Concomitant]
     Route: 048
  3. LASIX [Concomitant]
     Route: 048
  4. KLOR-CON [Concomitant]
     Route: 048

REACTIONS (1)
  - Myocardial infarction [None]
